FAERS Safety Report 7564684-1 (Version None)
Quarter: 2011Q2

REPORT INFORMATION
  Report Type: 
  Country: None (occurrence: None)
  Receive Date: 20110622
  Receipt Date: 20100826
  Transmission Date: 20111010
  Serious: Yes (Death)
  Sender: FDA-Public Use
  Company Number: US-MYLANLABS-2010S1015708

PATIENT
  Age: 69 Year
  Sex: Male

DRUGS (7)
  1. IPRATROPIUM BROMIDE AND ALBUTEROL SULFATE [Concomitant]
     Route: 055
  2. CLOZAPINE [Suspect]
     Indication: SCHIZOPHRENIA
     Route: 048
  3. COLACE [Concomitant]
  4. FLOMAX [Concomitant]
  5. LOPID [Concomitant]
  6. GLYCOLAX [Concomitant]
  7. PEPCID [Concomitant]

REACTIONS (1)
  - NEOPLASM MALIGNANT [None]
